FAERS Safety Report 5949783-X (Version None)
Quarter: 2008Q4

REPORT INFORMATION
  Report Type: 
  Country: None (occurrence: None)
  Receive Date: 20081112
  Receipt Date: 20081105
  Transmission Date: 20090506
  Serious: Yes (Other)
  Sender: FDA-Public Use
  Company Number: US-ASTRAZENECA-2008UW19631

PATIENT
  Age: 87 Year
  Sex: Female

DRUGS (2)
  1. NOLVADEX [Suspect]
     Indication: NEOPLASM MALIGNANT
     Route: 048
  2. PREDNISONE TAB [Concomitant]

REACTIONS (2)
  - BRAIN NEOPLASM [None]
  - RECURRENT CANCER [None]
